FAERS Safety Report 19147927 (Version 5)
Quarter: 2021Q4

REPORT INFORMATION
  Report Type: Spontaneous
  Country: JP (occurrence: JP)
  Receive Date: 20210416
  Receipt Date: 20211124
  Transmission Date: 20220303
  Serious: Yes (Hospitalization, Other)
  Sender: FDA-Public Use
  Company Number: JP-BAYER-2021-121887

PATIENT
  Age: 77 Year
  Sex: Male
  Weight: 82 kg

DRUGS (2)
  1. XOFIGO [Suspect]
     Active Substance: RADIUM RA-223 DICHLORIDE
     Indication: Hormone-refractory prostate cancer
     Dosage: 55 KBQ/KG, ONCE
     Route: 042
     Dates: start: 20181016, end: 20181016
  2. XOFIGO [Suspect]
     Active Substance: RADIUM RA-223 DICHLORIDE
     Indication: Metastases to bone
     Dosage: 55 KBQ/KG, ONCE
     Route: 042
     Dates: start: 20181113, end: 20181113

REACTIONS (5)
  - Hormone-refractory prostate cancer [None]
  - Skin ulcer [Recovering/Resolving]
  - Blister [Recovering/Resolving]
  - Fibrin D dimer increased [None]
  - Oedema peripheral [None]

NARRATIVE: CASE EVENT DATE: 20181113
